FAERS Safety Report 12205841 (Version 1)
Quarter: 2016Q1

REPORT INFORMATION
  Report Type: Spontaneous
  Country: IT (occurrence: IT)
  Receive Date: 20160323
  Receipt Date: 20160323
  Transmission Date: 20160526
  Serious: Yes (Other)
  Sender: FDA-Public Use
  Company Number: PHHY2016IT031444

PATIENT
  Age: 32 Year
  Sex: Male

DRUGS (1)
  1. ACETYLSALICYLIC ACID [Suspect]
     Active Substance: ASPIRIN
     Indication: ANTIINFLAMMATORY THERAPY
     Route: 048
     Dates: start: 20150922, end: 20150922

REACTIONS (5)
  - Face oedema [Recovering/Resolving]
  - Lacrimation increased [Recovering/Resolving]
  - Flushing [Recovering/Resolving]
  - Drug hypersensitivity [Recovering/Resolving]
  - Oedema peripheral [Recovering/Resolving]

NARRATIVE: CASE EVENT DATE: 20150922
